FAERS Safety Report 4722259-3 (Version None)
Quarter: 2005Q3

REPORT INFORMATION
  Report Type: 
  Country: None (occurrence: None)
  Receive Date: 20050722
  Receipt Date: 20040923
  Transmission Date: 20060218
  Serious: No
  Sender: FDA-Public Use
  Company Number: US-GLAXOSMITHKLINE-A0527118A

PATIENT
  Age: 84 Year
  Sex: Male

DRUGS (13)
  1. AVANDIA [Suspect]
     Dosage: 4MG PER DAY
     Route: 048
  2. ARICEPT [Concomitant]
  3. ASPIRIN [Concomitant]
  4. VENLAFAXINE HCL [Concomitant]
  5. LISINOPRIL [Concomitant]
  6. OMEPRAZOLE [Concomitant]
  7. PLAVIX [Concomitant]
  8. GLIPIZIDE [Concomitant]
  9. HYTRIN [Concomitant]
  10. SIMVASTATIN [Concomitant]
  11. METOPROLOL [Concomitant]
  12. ZETIA [Concomitant]
  13. IRON SULFATETHIAMIN COMPOUND TAB [Concomitant]

REACTIONS (1)
  - WEIGHT INCREASED [None]
